FAERS Safety Report 17870523 (Version 8)
Quarter: 2021Q3

REPORT INFORMATION
  Report Type: Spontaneous
  Country: US (occurrence: US)
  Receive Date: 20200608
  Receipt Date: 20210810
  Transmission Date: 20211014
  Serious: No
  Sender: FDA-Public Use
  Company Number: US-PFIZER INC-2020157197

PATIENT
  Age: 51 Year
  Sex: Male

DRUGS (1)
  1. XELJANZ XR [Suspect]
     Active Substance: TOFACITINIB CITRATE
     Indication: RHEUMATOID ARTHRITIS
     Dosage: 11 MG, DAILY
     Route: 048
     Dates: start: 2017

REACTIONS (8)
  - Therapeutic response unexpected [Unknown]
  - Wound [Unknown]
  - Condition aggravated [Unknown]
  - Limb injury [Unknown]
  - Joint range of motion decreased [Unknown]
  - Skin ulcer [Recovering/Resolving]
  - Musculoskeletal stiffness [Unknown]
  - Product dose omission in error [Unknown]

NARRATIVE: CASE EVENT DATE: 2020
